FAERS Safety Report 4585370-6 (Version None)
Quarter: 2005Q1

REPORT INFORMATION
  Report Type: 
  Country: None (occurrence: None)
  Receive Date: 20050217
  Receipt Date: 20040817
  Transmission Date: 20050727
  Serious: Yes (Hospitalization)
  Sender: FDA-Public Use
  Company Number: BE-BRISTOL-MYERS SQUIBB COMPANY-12679445

PATIENT
  Age: 66 Year
  Sex: Female

DRUGS (6)
  1. GLUCOVANCE [Suspect]
     Indication: DIABETES MELLITUS NON-INSULIN-DEPENDENT
     Dosage: SWITCHED FROM GLUCOPHAGE 16JUN04, THEN BACK TO GLUCOPHAGE 25JUN04, BUT D/C GLUCOVANCE 07JUL04
     Route: 048
     Dates: start: 20040616, end: 20040707
  2. VOLTAREN [Suspect]
     Route: 048
  3. ZOCOR [Suspect]
     Route: 048
  4. CLORAZEPATE DIPOTASSIUM [Suspect]
     Route: 048
  5. FEMOSTON [Suspect]
  6. GLUCOPHAGE [Concomitant]
     Indication: DIABETES MELLITUS NON-INSULIN-DEPENDENT
     Dosage: SWITCHED TO GLUCOVANCE ON 16-JUN-04; ON 13-JUL-2004 WAS DISCHARGED HOME ON GLUCOPHAGE 850MG BID
     Route: 048

REACTIONS (13)
  - ALVEOLITIS [None]
  - ALVEOLITIS ALLERGIC [None]
  - CENTRAL VENOUS PRESSURE INCREASED [None]
  - CRYPTOGENIC ORGANIZING PNEUMONIA [None]
  - DRUG TOXICITY [None]
  - FEELING COLD [None]
  - GLYCOSYLATED HAEMOGLOBIN INCREASED [None]
  - INTERSTITIAL LUNG DISEASE [None]
  - LUNG INFILTRATION [None]
  - PNEUMONITIS [None]
  - PULMONARY HAEMORRHAGE [None]
  - SARCOIDOSIS [None]
  - VASCULITIS [None]
